FAERS Safety Report 7635571-5 (Version None)
Quarter: 2011Q3

REPORT INFORMATION
  Report Type: 
  Country: None (occurrence: None)
  Receive Date: 20110726
  Receipt Date: 20110711
  Transmission Date: 20111222
  Serious: Yes (Other)
  Sender: FDA-Public Use
  Company Number: PHHY2011BR62968

PATIENT
  Sex: Female

DRUGS (8)
  1. LANTUS [Concomitant]
     Dosage: UNK UKN, UNK
  2. SIMVASTATIN [Concomitant]
     Dosage: ONCE A DAY IN THE AFTERNOON
  3. CAPTOPRIL [Concomitant]
     Indication: HYPERTENSION
     Dosage: 25 MG, TID
  4. SALICYLIC ACID [Concomitant]
     Dosage: UNK UKN, QD
  5. GLUCOFORMIN [Concomitant]
     Dosage: 850 MG, BID
  6. DIOVAN [Suspect]
     Dosage: UNK UKN, UNK
  7. BONIVA [Concomitant]
     Indication: OSTEOPOROSIS
     Dosage: 1 TABLET
     Dates: start: 20110624
  8. NOVORAPID [Concomitant]
     Dosage: UNK UKN, UNK

REACTIONS (1)
  - DIABETES MELLITUS INADEQUATE CONTROL [None]
